FAERS Safety Report 20826825 (Version 2)
Quarter: 2022Q2

REPORT INFORMATION
  Report Type: Report from Study
  Country: AR (occurrence: AR)
  Receive Date: 20220513
  Receipt Date: 20220609
  Transmission Date: 20220721
  Serious: Yes (Other)
  Sender: FDA-Public Use
  Company Number: AR-BRISTOL-MYERS SQUIBB COMPANY-2022-016315

PATIENT
  Age: 79 Year
  Sex: Female

DRUGS (1)
  1. ELIQUIS [Suspect]
     Active Substance: APIXABAN
     Indication: Cerebrovascular accident prophylaxis
     Route: 048
     Dates: start: 201803

REACTIONS (7)
  - Haemorrhage [Unknown]
  - Gastrointestinal infection [Recovered/Resolved]
  - Musculoskeletal disorder [Unknown]
  - Cardiac disorder [Unknown]
  - Visual impairment [Unknown]
  - Osteoarthritis [Unknown]
  - Head injury [Unknown]

NARRATIVE: CASE EVENT DATE: 20210101
